FAERS Safety Report 18240075 (Version 3)
Quarter: 2020Q4

REPORT INFORMATION
  Report Type: Spontaneous
  Country: BG (occurrence: BG)
  Receive Date: 20200908
  Receipt Date: 20201016
  Transmission Date: 20210113
  Serious: Yes (Death, Other)
  Sender: FDA-Public Use
  Company Number: BG-ASTELLAS-2020US030674

PATIENT
  Age: 56 Year
  Sex: Male

DRUGS (10)
  1. NYSTATIN. [Concomitant]
     Active Substance: NYSTATIN
     Indication: ANTIFUNGAL PROPHYLAXIS
     Dosage: UNK UNK, UNKNOWN FREQ.
     Route: 065
     Dates: start: 2019
  2. TACROLIMUS. [Suspect]
     Active Substance: TACROLIMUS
     Dosage: UNK UNK, TWICE DAILY (DOSES FROM 1+1 MG TO 3+3 MG)
     Route: 048
     Dates: start: 20191119, end: 20191123
  3. MYCOPHENOLATE MOFETIL. [Concomitant]
     Active Substance: MYCOPHENOLATE MOFETIL
     Indication: LIVER TRANSPLANT
     Route: 065
     Dates: start: 2019
  4. RITUXIMAB. [Concomitant]
     Active Substance: RITUXIMAB
     Indication: IMMUNE TOLERANCE INDUCTION
     Route: 065
     Dates: start: 2019
  5. TACROLIMUS. [Suspect]
     Active Substance: TACROLIMUS
     Indication: LIVER TRANSPLANT
     Dosage: UNK UNK, TWICE DAILY (DOSES FROM 10+10 MG TO 3+3 MG)
     Route: 048
     Dates: start: 20191014, end: 20191114
  6. METHYLPREDNISOLONE. [Concomitant]
     Active Substance: METHYLPREDNISOLONE
     Indication: LIVER TRANSPLANT
     Route: 065
     Dates: start: 201910, end: 2019
  7. METHYLPREDNISOLONE. [Concomitant]
     Active Substance: METHYLPREDNISOLONE
     Route: 065
     Dates: start: 2019, end: 2019
  8. PREDNISOLONE. [Concomitant]
     Active Substance: PREDNISOLONE
     Indication: LIVER TRANSPLANT
     Route: 048
     Dates: start: 2019
  9. AMOXICILLIN/CLAVULANIC ACID [Suspect]
     Active Substance: AMOXICILLIN\CLAVULANIC ACID
     Indication: ANTIBIOTIC PROPHYLAXIS
     Dosage: UNK UNK, UNKNOWN FREQ.
     Route: 042
     Dates: start: 2019
  10. METHYLPREDNISOLONE. [Concomitant]
     Active Substance: METHYLPREDNISOLONE
     Route: 065
     Dates: start: 2019, end: 2019

REACTIONS (12)
  - Anuria [Fatal]
  - Bone marrow failure [Not Recovered/Not Resolved]
  - Product use in unapproved indication [Unknown]
  - Enterococcal infection [Recovering/Resolving]
  - Perihepatic abscess [Fatal]
  - Post procedural bile leak [Fatal]
  - Klebsiella infection [Recovering/Resolving]
  - Pseudomonas infection [Recovering/Resolving]
  - Septic shock [Fatal]
  - Passenger lymphocyte syndrome [Recovering/Resolving]
  - Transplant rejection [Recovering/Resolving]
  - Cytomegalovirus infection [Recovering/Resolving]

NARRATIVE: CASE EVENT DATE: 2019
